FAERS Safety Report 8232450-X (Version None)
Quarter: 2012Q1

REPORT INFORMATION
  Report Type: 
  Country: None (occurrence: None)
  Receive Date: 20120323
  Receipt Date: 20120315
  Transmission Date: 20120608
  Serious: No
  Sender: FDA-Public Use
  Company Number: US-BAYER-2012-028573

PATIENT

DRUGS (1)
  1. ULTRAVIST 150 [Suspect]

REACTIONS (7)
  - NAUSEA [None]
  - FEELING HOT [None]
  - URTICARIA [None]
  - HEADACHE [None]
  - VOMITING [None]
  - SNEEZING [None]
  - DIZZINESS [None]
